FAERS Safety Report 14340008 (Version 8)
Quarter: 2018Q3

REPORT INFORMATION
  Report Type: Report from Study
  Country: GB (occurrence: GB)
  Receive Date: 20171231
  Receipt Date: 20180917
  Transmission Date: 20181010
  Serious: Yes (Hospitalization)
  Sender: FDA-Public Use
  Company Number: GB-TEVA-2017-GB-836757

PATIENT
  Age: 70 Year
  Sex: Female

DRUGS (4)
  1. DEXAMETHASONE. [Suspect]
     Active Substance: DEXAMETHASONE
     Indication: PRODUCT USED FOR UNKNOWN INDICATION
     Route: 065
  2. DEXAMETHASONE. [Suspect]
     Active Substance: DEXAMETHASONE
     Route: 065
  3. NINLARO [Suspect]
     Active Substance: IXAZOMIB CITRATE
     Indication: PRODUCT USED FOR UNKNOWN INDICATION
     Dosage: UNK
     Route: 048
  4. LENALIDOMIDE [Suspect]
     Active Substance: LENALIDOMIDE
     Indication: PRODUCT USED FOR UNKNOWN INDICATION
     Route: 065

REACTIONS (15)
  - Nail bed infection [Unknown]
  - Vomiting [Unknown]
  - Muscle spasms [Unknown]
  - Skin lesion [Unknown]
  - Toxicity to various agents [Unknown]
  - Fatigue [Unknown]
  - Joint stiffness [Unknown]
  - Micturition urgency [Unknown]
  - Urinary hesitation [Unknown]
  - Nausea [Unknown]
  - Lip swelling [Unknown]
  - Haematoma [Recovering/Resolving]
  - Off label use [Unknown]
  - Joint swelling [Unknown]
  - Lip pain [Unknown]
